FAERS Safety Report 20485288 (Version 1)
Quarter: 2022Q1

REPORT INFORMATION
  Report Type: Spontaneous
  Country: US (occurrence: None)
  Receive Date: 20220216
  Receipt Date: 20220216
  Transmission Date: 20220423
  Serious: Yes (Death)
  Sender: FDA-Public Use
  Company Number: None

PATIENT
  Age: 79 Year
  Sex: Male

DRUGS (1)
  1. LOKELMA [Suspect]
     Active Substance: SODIUM ZIRCONIUM CYCLOSILICATE
     Indication: Hyperkalaemia
     Dosage: OTHER QUANTITY : 1 PACKET;?FREQUENCY : DAILY;?
     Route: 048
     Dates: start: 20211231, end: 20220109

REACTIONS (1)
  - Death [None]

NARRATIVE: CASE EVENT DATE: 20220109
